FAERS Safety Report 6672572-8 (Version None)
Quarter: 2010Q2

REPORT INFORMATION
  Report Type: 
  Country: None (occurrence: None)
  Receive Date: 20100406
  Receipt Date: 20100329
  Transmission Date: 20101027
  Serious: Yes (Death, Other)
  Sender: FDA-Public Use
  Company Number: 2007JP004773

PATIENT
  Age: 40 Year
  Sex: Female

DRUGS (11)
  1. PROGRAF [Suspect]
     Indication: CORD BLOOD TRANSPLANT THERAPY
  2. FLUDARABINE PHOSPHATE [Concomitant]
  3. MELPHALAN HYDROCHLORIDE [Concomitant]
  4. ACYCLOVIR [Concomitant]
  5. TOSUFLOXACIN (TOSUFLOXACIN) [Concomitant]
  6. ITRACONAZOLE [Concomitant]
  7. SULFAMETHOXAZOLE AND TRIMETHOPRIM [Concomitant]
  8. METHYLPREDNISOLONE [Concomitant]
  9. FOSCARNET [Concomitant]
  10. ETOPOSIDE [Concomitant]
  11. GRANULOCYTE COLONY STIMULATING FACTOR [Concomitant]

REACTIONS (8)
  - BLOOD BILIRUBIN INCREASED [None]
  - DIARRHOEA [None]
  - HISTIOCYTOSIS HAEMATOPHAGIC [None]
  - PANCYTOPENIA [None]
  - PATHOGEN RESISTANCE [None]
  - PSEUDOMONAL SEPSIS [None]
  - STAPHYLOCOCCAL SEPSIS [None]
  - THROMBOTIC MICROANGIOPATHY [None]
